FAERS Safety Report 24189548 (Version 1)
Quarter: 2024Q3

REPORT INFORMATION
  Report Type: Spontaneous
  Country: US (occurrence: None)
  Receive Date: 20240807
  Receipt Date: 20240807
  Transmission Date: 20241017
  Serious: Yes (unspecified)
  Sender: Public
  Company Number: None

PATIENT
  Age: 66 Year
  Sex: Female

DRUGS (1)
  1. YUVAFEM [Suspect]
     Active Substance: ESTRADIOL HEMIHYDRATE
     Indication: Atrophic vulvovaginitis
     Dosage: OTHER QUANTITY : 1 TABLET(S);?FREQUENCY : DAILY;?
     Route: 067
     Dates: start: 20240806, end: 20240807

REACTIONS (3)
  - Vulvovaginal burning sensation [None]
  - Pruritus [None]
  - Pelvic pain [None]

NARRATIVE: CASE EVENT DATE: 20240807
